FAERS Safety Report 17152107 (Version 1)
Quarter: 2019Q4

REPORT INFORMATION
  Report Type: Spontaneous
  Country: NZ (occurrence: NZ)
  Receive Date: 20191213
  Receipt Date: 20191213
  Transmission Date: 20200122
  Serious: Yes (Other)
  Sender: FDA-Public Use
  Company Number: NZ-ASTRAZENECA-2019SF79091

PATIENT
  Age: 68 Year
  Sex: Female

DRUGS (3)
  1. QUETIAPINE (UNSPECIFIED) [Suspect]
     Active Substance: QUETIAPINE
     Dosage: DOSE AND FREQUENCY NOT REPORTED
     Route: 048
  2. TETRABENAZINE. [Suspect]
     Active Substance: TETRABENAZINE
     Route: 065
  3. OLANZAPINE. [Suspect]
     Active Substance: OLANZAPINE
     Route: 065

REACTIONS (4)
  - Facial paralysis [Unknown]
  - Dysphagia [Unknown]
  - Dysarthria [Unknown]
  - Pseudobulbar palsy [Unknown]
